FAERS Safety Report 15237841 (Version 1)
Quarter: 2018Q3

REPORT INFORMATION
  Report Type: Spontaneous
  Country: TR (occurrence: TR)
  Receive Date: 20180803
  Receipt Date: 20180803
  Transmission Date: 20181010
  Serious: Yes (Death)
  Sender: FDA-Public Use
  Company Number: TR-ROCHE-2162758

PATIENT
  Weight: 1.45 kg

DRUGS (3)
  1. ACTILYSE [Suspect]
     Active Substance: ALTEPLASE
     Indication: PRODUCT USED FOR UNKNOWN INDICATION
     Dosage: THREE DOSES OF FIBRINOLYTIC THERAPY (ALTEPLASE 0,2 MG / KG, 0,4 MG / KG, 0,6 MG / KG)
     Route: 065
  2. HEPARIN [Concomitant]
     Active Substance: HEPARIN SODIUM
     Indication: PRODUCT USED FOR UNKNOWN INDICATION
  3. ENOXAPARIN [Concomitant]
     Active Substance: ENOXAPARIN
     Indication: PRODUCT USED FOR UNKNOWN INDICATION

REACTIONS (1)
  - Disseminated intravascular coagulation [Fatal]
